FAERS Safety Report 6920059-7 (Version None)
Quarter: 2010Q3

REPORT INFORMATION
  Report Type: 
  Country: None (occurrence: None)
  Receive Date: 20100811
  Receipt Date: 20100730
  Transmission Date: 20110219
  Serious: Yes (Hospitalization)
  Sender: FDA-Public Use
  Company Number: US-PFIZER INC-2010096125

PATIENT
  Sex: Female
  Weight: 88.435 kg

DRUGS (1)
  1. CHANTIX [Suspect]
     Indication: SMOKING CESSATION THERAPY
     Dosage: 1 MG, UNK
     Route: 048
     Dates: start: 20100701, end: 20100729

REACTIONS (5)
  - CONVULSION [None]
  - STARING [None]
  - UNEVALUABLE EVENT [None]
  - UNRESPONSIVE TO STIMULI [None]
  - VOMITING [None]
